FAERS Safety Report 12078569 (Version 2)
Quarter: 2016Q1

REPORT INFORMATION
  Report Type: Spontaneous
  Country: TR (occurrence: TR)
  Receive Date: 20160216
  Receipt Date: 20160315
  Transmission Date: 20160526
  Serious: Yes (Other)
  Sender: FDA-Public Use
  Company Number: TR-ROCHE-1710369

PATIENT
  Age: 60 Year
  Sex: Female

DRUGS (4)
  1. CISPLATIN. [Concomitant]
     Active Substance: CISPLATIN
     Dosage: DAY 1 AND 8
     Route: 065
  2. CISPLATIN. [Concomitant]
     Active Substance: CISPLATIN
     Dosage: DAY 1
     Route: 065
  3. XELODA [Suspect]
     Active Substance: CAPECITABINE
     Indication: GASTRIC CANCER STAGE IV
     Dosage: DAY 1 TO 14 ONCE EVERY THREE WEEKS FOR THREE CYCLES
     Route: 048
  4. XELODA [Suspect]
     Active Substance: CAPECITABINE
     Dosage: MAINTENANCE TREATMENT
     Route: 048

REACTIONS (1)
  - Organising pneumonia [Recovered/Resolved]
